FAERS Safety Report 20207841 (Version 1)
Quarter: 2021Q4

REPORT INFORMATION
  Report Type: Spontaneous
  Country: US (occurrence: US)
  Receive Date: 20211220
  Receipt Date: 20211220
  Transmission Date: 20220303
  Serious: Yes (Other)
  Sender: FDA-Public Use
  Company Number: US-TAKEDA-2021TUS079550

PATIENT
  Sex: Female
  Weight: 75 kg

DRUGS (1)
  1. ENTYVIO [Suspect]
     Active Substance: VEDOLIZUMAB
     Indication: Crohn^s disease
     Dosage: UNK, Q4WEEKS
     Route: 042

REACTIONS (3)
  - Malignant melanoma [Unknown]
  - Migraine [Unknown]
  - Off label use [Unknown]
